FAERS Safety Report 4308093-7 (Version None)
Quarter: 2004Q1

REPORT INFORMATION
  Report Type: 
  Country: None (occurrence: None)
  Receive Date: 20040301
  Receipt Date: 20030506
  Transmission Date: 20041129
  Serious: No
  Sender: FDA-Public Use
  Company Number: US-BRISTOL-MYERS SQUIBB COMPANY-12268728

PATIENT
  Sex: Female

DRUGS (3)
  1. GLUCOPHAGE [Suspect]
     Indication: DIABETES MELLITUS
     Dosage: DURATION OF THERAPY:  ^QUITE A WHILE^
     Route: 048
     Dates: end: 20020101
  2. LIPITOR [Concomitant]
  3. WELCHOL [Concomitant]

REACTIONS (1)
  - ABDOMINAL PAIN UPPER [None]
